FAERS Safety Report 23573013 (Version 1)
Quarter: 2024Q1

REPORT INFORMATION
  Report Type: Report from Study
  Country: US (occurrence: US)
  Receive Date: 20240227
  Receipt Date: 20240227
  Transmission Date: 20240410
  Serious: Yes (Other)
  Sender: FDA-Public Use
  Company Number: US-JNJFOC-20240249050

PATIENT
  Sex: Female

DRUGS (1)
  1. TECVAYLI [Suspect]
     Active Substance: TECLISTAMAB-CQYV
     Indication: Plasma cell myeloma
     Route: 058
     Dates: start: 20231030

REACTIONS (6)
  - Neuropathy peripheral [Unknown]
  - Ear infection [Recovered/Resolved]
  - Toothache [Unknown]
  - Eye pain [Unknown]
  - Myalgia [Unknown]
  - Upper respiratory tract infection [Recovered/Resolved]
